FAERS Safety Report 17668751 (Version 1)
Quarter: 2020Q2

REPORT INFORMATION
  Report Type: Spontaneous
  Country: US (occurrence: US)
  Receive Date: 20200415
  Receipt Date: 20200415
  Transmission Date: 20200713
  Serious: No
  Sender: FDA-Public Use
  Company Number: US-GLAXOSMITHKLINE-US2020064796

PATIENT
  Age: 84 Year
  Sex: Female

DRUGS (2)
  1. ABREVA [Suspect]
     Active Substance: DOCOSANOL
     Indication: ORAL HERPES
     Dosage: UNK (USE MORE THAN ONE A DAY)
     Dates: start: 20200409
  2. ABREVA [Suspect]
     Active Substance: DOCOSANOL
     Dosage: UNK (USE MORE THAN ONE A DAY)

REACTIONS (5)
  - Condition aggravated [Unknown]
  - Application site haemorrhage [Unknown]
  - Oral herpes [Unknown]
  - Pharyngeal ulceration [Unknown]
  - Stomatitis [Unknown]

NARRATIVE: CASE EVENT DATE: 20200409
